FAERS Safety Report 8341454-8 (Version None)
Quarter: 2012Q2

REPORT INFORMATION
  Report Type: 
  Country: None (occurrence: None)
  Receive Date: 20120507
  Receipt Date: 20120425
  Transmission Date: 20120825
  Serious: Yes (Other)
  Sender: FDA-Public Use
  Company Number: JP-MERCK-1110USA03085

PATIENT
  Age: 52 Year
  Sex: Female
  Weight: 63 kg

DRUGS (5)
  1. METFORMIN HCL [Concomitant]
     Route: 048
     Dates: start: 20090101
  2. JANUVIA [Suspect]
     Route: 048
     Dates: start: 20100507, end: 20101114
  3. METFORMIN HCL [Concomitant]
     Route: 048
     Dates: start: 20110613
  4. AMARYL [Concomitant]
     Route: 048
     Dates: start: 20100924
  5. JANUVIA [Suspect]
     Indication: DIABETES MELLITUS
     Route: 048
     Dates: start: 20110121, end: 20111021

REACTIONS (2)
  - DRUG INEFFECTIVE [None]
  - TRANSIENT GLOBAL AMNESIA [None]
